FAERS Safety Report 4921034-4 (Version None)
Quarter: 2006Q1

REPORT INFORMATION
  Report Type: 
  Country: None (occurrence: None)
  Receive Date: 20060216
  Receipt Date: 20060208
  Transmission Date: 20060701
  Serious: Yes (Hospitalization)
  Sender: FDA-Public Use
  Company Number: GBWYE374908FEB06

PATIENT
  Sex: Male

DRUGS (1)
  1. EFFEXOR XR [Suspect]
     Dosage: OVERDOSE OF 1 MONTHS SUPPLY (8G)
     Dates: start: 20060101, end: 20060101

REACTIONS (2)
  - HYPERTHERMIA MALIGNANT [None]
  - INTENTIONAL OVERDOSE [None]
